FAERS Safety Report 11928262 (Version 1)
Quarter: 2016Q1

REPORT INFORMATION
  Report Type: Spontaneous
  Country: TN (occurrence: TN)
  Receive Date: 20160119
  Receipt Date: 20160119
  Transmission Date: 20160526
  Serious: Yes (Other)
  Sender: FDA-Public Use
  Company Number: TN-HQ SPECIALTY-TN-2016INT000010

PATIENT
  Age: 16 Year
  Sex: Female

DRUGS (6)
  1. BLEOMYCIN [Suspect]
     Active Substance: BLEOMYCIN SULFATE
     Indication: TERATOMA
     Dosage: 30 MG, ON DAYS 1, 8 AND 15 EVERY 21 DAYS
     Route: 042
  2. ETOPOSIDE. [Suspect]
     Active Substance: ETOPOSIDE
     Indication: TERATOMA
     Dosage: 100 MG/M2, ON DAYS 1-5
     Route: 042
  3. BLEOMYCIN [Suspect]
     Active Substance: BLEOMYCIN SULFATE
     Indication: PERITONEAL GLIOMATOSIS
  4. CISPLATIN. [Suspect]
     Active Substance: CISPLATIN
     Indication: PERITONEAL GLIOMATOSIS
  5. CISPLATIN. [Suspect]
     Active Substance: CISPLATIN
     Indication: TERATOMA
     Dosage: 20 MG/M2, ON DAYS 1-5 EVERY 21 DAYS
     Route: 042
  6. ETOPOSIDE. [Suspect]
     Active Substance: ETOPOSIDE
     Indication: PERITONEAL GLIOMATOSIS

REACTIONS (3)
  - Cerebral venous thrombosis [Recovered/Resolved]
  - Hemiparesis [Recovered/Resolved]
  - Superior sagittal sinus thrombosis [Recovered/Resolved]
